FAERS Safety Report 12367791 (Version 2)
Quarter: 2016Q4

REPORT INFORMATION
  Report Type: Spontaneous
  Country: NL (occurrence: NL)
  Receive Date: 20160513
  Receipt Date: 20161003
  Transmission Date: 20170207
  Serious: Yes (Hospitalization)
  Sender: FDA-Public Use
  Company Number: NL-FRI-1000084492

PATIENT
  Age: 37 Year
  Sex: Female
  Weight: 70 kg

DRUGS (1)
  1. CIPRAMIL TABLETS [Suspect]
     Active Substance: CITALOPRAM HYDROBROMIDE
     Indication: PERINATAL DEPRESSION
     Dosage: 40 MG, QD
     Route: 048
     Dates: start: 20151001

REACTIONS (4)
  - Trismus [Recovered/Resolved]
  - Seizure [Recovered/Resolved]
  - Refusal of treatment by patient [None]
  - Headache [Recovered/Resolved]

NARRATIVE: CASE EVENT DATE: 20151001
